FAERS Safety Report 14681756 (Version 1)
Quarter: 2018Q1

REPORT INFORMATION
  Report Type: Spontaneous
  Country: US (occurrence: US)
  Receive Date: 20180326
  Receipt Date: 20180326
  Transmission Date: 20180509
  Serious: No
  Sender: FDA-Public Use
  Company Number: US-ALLERGAN-1755479US

PATIENT
  Sex: Female
  Weight: 50.34 kg

DRUGS (3)
  1. ZENPEP [Suspect]
     Active Substance: PANCRELIPASE AMYLASE\PANCRELIPASE LIPASE\PANCRELIPASE PROTEASE
     Dosage: 25000 UNITS, UNK
     Route: 048
     Dates: start: 201710
  2. CREON [Concomitant]
     Active Substance: PANCRELIPASE AMYLASE\PANCRELIPASE LIPASE\PANCRELIPASE PROTEASE
     Indication: ENZYME SUPPLEMENTATION
     Route: 048
  3. ZENPEP [Suspect]
     Active Substance: PANCRELIPASE AMYLASE\PANCRELIPASE LIPASE\PANCRELIPASE PROTEASE
     Indication: ENZYME SUPPLEMENTATION
     Dosage: 25000 UNITS, UNK
     Route: 048
     Dates: start: 201706

REACTIONS (11)
  - Drug dispensing error [Unknown]
  - Faeces discoloured [Recovered/Resolved]
  - Off label use [Unknown]
  - Nausea [Not Recovered/Not Resolved]
  - Drug dose omission [Unknown]
  - Abnormal faeces [Recovered/Resolved]
  - Palpitations [Not Recovered/Not Resolved]
  - Headache [Not Recovered/Not Resolved]
  - Flatulence [Recovered/Resolved]
  - Diarrhoea [Unknown]
  - Constipation [Not Recovered/Not Resolved]
